FAERS Safety Report 8357543-8 (Version None)
Quarter: 2012Q2

REPORT INFORMATION
  Report Type: 
  Country: None (occurrence: None)
  Receive Date: 20120514
  Receipt Date: 20120503
  Transmission Date: 20120825
  Serious: Yes (Other)
  Sender: FDA-Public Use
  Company Number: US-ACTELION-A-NJ2012-65225

PATIENT

DRUGS (2)
  1. TRACLEER [Suspect]
     Indication: PULMONARY ARTERIAL HYPERTENSION
     Dosage: UNK
     Route: 048
     Dates: start: 20031124
  2. COUMADIN [Concomitant]

REACTIONS (8)
  - VOMITING [None]
  - WEIGHT DECREASED [None]
  - NAUSEA [None]
  - BALANCE DISORDER [None]
  - INSOMNIA [None]
  - ASTHENIA [None]
  - DIALYSIS [None]
  - DYSPNOEA [None]
